FAERS Safety Report 8121726-2 (Version None)
Quarter: 2012Q1

REPORT INFORMATION
  Report Type: 
  Country: None (occurrence: None)
  Receive Date: 20120207
  Receipt Date: 20120207
  Transmission Date: 20120608
  Serious: Yes (Life-Threatening, Hospitalization, Disabling, Other)
  Sender: FDA-Public Use
  Company Number: None

PATIENT
  Sex: Male
  Weight: 78.4723 kg

DRUGS (1)
  1. BETHANECHOL [Suspect]
     Indication: BLADDER DISORDER
     Dosage: 1 TAB 4X DAILY 1 TAB EA 6 HRS
     Dates: start: 20111115, end: 20111127

REACTIONS (8)
  - DECREASED APPETITE [None]
  - WEIGHT DECREASED [None]
  - HYPERHIDROSIS [None]
  - LOSS OF CONSCIOUSNESS [None]
  - MYOCARDIAL INFARCTION [None]
  - AMNESIA [None]
  - BLOOD POTASSIUM DECREASED [None]
  - CONVULSION [None]
